FAERS Safety Report 4900902-3 (Version None)
Quarter: 2006Q1

REPORT INFORMATION
  Report Type: 
  Country: None (occurrence: None)
  Receive Date: 20060201
  Receipt Date: 20060123
  Transmission Date: 20060701
  Serious: Yes (Other)
  Sender: FDA-Public Use
  Company Number: GXKR2006ES00611

PATIENT
  Age: 10 Year
  Sex: Male

DRUGS (1)
  1. LOPERAMIDE [Suspect]
     Dosage: 2 MG, ONCE/SINGLE, ORAL
     Route: 048

REACTIONS (3)
  - ANAPHYLACTIC REACTION [None]
  - RHINORRHOEA [None]
  - SKIN TEST POSITIVE [None]
